FAERS Safety Report 7529879-1 (Version None)
Quarter: 2011Q2

REPORT INFORMATION
  Report Type: 
  Country: None (occurrence: None)
  Receive Date: 20110520
  Receipt Date: 20100430
  Transmission Date: 20111010
  Serious: Yes (Hospitalization, Other)
  Sender: FDA-Public Use
  Company Number: 2010SP025149

PATIENT
  Age: 36 Year
  Sex: Female

DRUGS (2)
  1. FOLLISTIM AQ [Suspect]
     Indication: POLYCYSTIC OVARIES
     Dosage: 150 IU;QD;SC 75 IU;QD;SC
     Route: 058
     Dates: start: 20100407, end: 20100409
  2. FOLLISTIM AQ [Suspect]
     Indication: POLYCYSTIC OVARIES
     Dosage: 150 IU;QD;SC 75 IU;QD;SC
     Route: 058
     Dates: start: 20100410, end: 20100415

REACTIONS (1)
  - OVARIAN HYPERSTIMULATION SYNDROME [None]
